FAERS Safety Report 18079242 (Version 1)
Quarter: 2020Q3

REPORT INFORMATION
  Report Type: Spontaneous
  Country: US (occurrence: US)
  Receive Date: 20200728
  Receipt Date: 20200728
  Transmission Date: 20201103
  Serious: No
  Sender: FDA-Public Use
  Company Number: US-BAYER-2020-151966

PATIENT
  Age: 6 Year
  Sex: Female

DRUGS (1)
  1. MIRALAX [Suspect]
     Active Substance: POLYETHYLENE GLYCOL 3350
     Dosage: 3 TO 4 TIMES PERDAY
     Route: 048
     Dates: start: 20191226, end: 20200302

REACTIONS (4)
  - Vomiting [Unknown]
  - Nausea [Unknown]
  - Product use issue [Unknown]
  - Abdominal pain [Unknown]
